FAERS Safety Report 8716207 (Version 2)
Quarter: 2013Q4

REPORT INFORMATION
  Report Type: Spontaneous
  Country: US (occurrence: US)
  Receive Date: 20120809
  Receipt Date: 20131108
  Transmission Date: 20140711
  Serious: Yes (Other)
  Sender: FDA-Public Use
  Company Number: US-009507513-1207USA000634

PATIENT
  Sex: 0

DRUGS (2)
  1. NOXAFIL [Suspect]
     Indication: PROPHYLAXIS
  2. VINCRISTINE SULFATE [Interacting]
     Indication: PROPHYLAXIS

REACTIONS (14)
  - Convulsion [Recovered/Resolved]
  - Abasia [Not Recovered/Not Resolved]
  - Brain oedema [Recovered/Resolved]
  - Paraesthesia [Not Recovered/Not Resolved]
  - Peroneal nerve palsy [Not Recovered/Not Resolved]
  - Areflexia [Not Recovered/Not Resolved]
  - Muscular weakness [Not Recovered/Not Resolved]
  - Neurotoxicity [Recovered/Resolved]
  - Abdominal pain [Recovered/Resolved]
  - Constipation [Recovered/Resolved]
  - Hyponatraemia [Recovered/Resolved]
  - Inappropriate antidiuretic hormone secretion [Recovered/Resolved]
  - Agitation [Recovered/Resolved]
  - Drug interaction [Not Recovered/Not Resolved]
